FAERS Safety Report 8325643-4 (Version None)
Quarter: 2012Q2

REPORT INFORMATION
  Report Type: 
  Country: None (occurrence: None)
  Receive Date: 20120501
  Receipt Date: 20120423
  Transmission Date: 20120825
  Serious: No
  Sender: FDA-Public Use
  Company Number: US-JNJFOC-20120313050

PATIENT
  Sex: Female

DRUGS (6)
  1. BENZTROPINE MESYLATE [Concomitant]
     Route: 048
  2. INVEGA SUSTENNA [Suspect]
     Route: 030
     Dates: start: 20120301
  3. MELATONIN [Concomitant]
     Route: 048
  4. DIVALPROEX SODIUM [Concomitant]
     Route: 048
  5. INVEGA SUSTENNA [Suspect]
     Indication: PRODUCT USED FOR UNKNOWN INDICATION
     Route: 030
     Dates: start: 20120201
  6. LORATADINE [Concomitant]
     Route: 048

REACTIONS (1)
  - INJECTION SITE MASS [None]
